FAERS Safety Report 7223796-2 (Version None)
Quarter: 2011Q1

REPORT INFORMATION
  Report Type: 
  Country: None (occurrence: None)
  Receive Date: 20110112
  Receipt Date: 20101203
  Transmission Date: 20110831
  Serious: No
  Sender: FDA-Public Use
  Company Number: US-ALLERGAN-1015646US

PATIENT
  Age: 71 Year
  Sex: Female

DRUGS (2)
  1. SYSTANE [Concomitant]
     Dosage: UNK
     Dates: start: 20101118
  2. RESTASIS [Suspect]
     Indication: LACRIMATION INCREASED
     Dosage: 1 GTT, BID
     Route: 047
     Dates: start: 20101118

REACTIONS (4)
  - VISION BLURRED [None]
  - EYELID OEDEMA [None]
  - EYE IRRITATION [None]
  - EYE PRURITUS [None]
